FAERS Safety Report 6826799-2 (Version None)
Quarter: 2010Q3

REPORT INFORMATION
  Report Type: 
  Country: None (occurrence: None)
  Receive Date: 20100709
  Receipt Date: 20100630
  Transmission Date: 20110219
  Serious: Yes (Hospitalization)
  Sender: FDA-Public Use
  Company Number: AT-JNJFOC-20100506938

PATIENT
  Sex: Male
  Weight: 68 kg

DRUGS (7)
  1. GOLIMUMAB [Suspect]
     Indication: RHEUMATOID ARTHRITIS
     Route: 058
  2. GOLIMUMAB [Suspect]
     Route: 058
  3. GOLIMUMAB [Suspect]
     Route: 058
  4. EBETREXAT [Concomitant]
     Route: 048
  5. FOLSAN [Concomitant]
     Route: 048
  6. VOLTAREN [Concomitant]
     Route: 048
  7. ZURCAL [Concomitant]
     Route: 048

REACTIONS (4)
  - COLITIS [None]
  - DIVERTICULITIS [None]
  - URINARY BLADDER ABSCESS [None]
  - VESICAL FISTULA [None]
